FAERS Safety Report 24579992 (Version 1)
Quarter: 2024Q4

REPORT INFORMATION
  Report Type: Other
  Country: US (occurrence: US)
  Receive Date: 20241105
  Receipt Date: 20241105
  Transmission Date: 20250114
  Serious: Yes (Life-Threatening, Hospitalization, Other)
  Sender: COREPHARMA LLC
  Company Number: US-CorePharma LLC-2164489

PATIENT
  Age: 78 Year
  Sex: Female

DRUGS (2)
  1. LISINOPRIL [Suspect]
     Active Substance: LISINOPRIL
     Indication: Hypertension
  2. SITAGLIPTIN [Suspect]
     Active Substance: SITAGLIPTIN

REACTIONS (5)
  - Anaphylactic shock [Recovering/Resolving]
  - Hypotension [Recovering/Resolving]
  - Angioedema [Recovering/Resolving]
  - Acute respiratory failure [Recovering/Resolving]
  - Syncope [Recovering/Resolving]
